FAERS Safety Report 23027925 (Version 1)
Quarter: 2023Q4

REPORT INFORMATION
  Report Type: Spontaneous
  Country: US (occurrence: US)
  Receive Date: 20231004
  Receipt Date: 20231004
  Transmission Date: 20240110
  Serious: Yes (Hospitalization, Other)
  Sender: FDA-Public Use
  Company Number: US-PFIZER INC-202300309197

PATIENT
  Age: 53 Year
  Sex: Female
  Weight: 89.36 kg

DRUGS (4)
  1. PACLITAXEL [Suspect]
     Active Substance: PACLITAXEL
     Indication: Non-small cell lung cancer
     Dosage: EVERY 3 WEEKS
     Route: 042
     Dates: start: 20230831
  2. PACLITAXEL [Suspect]
     Active Substance: PACLITAXEL
     Dosage: EVERY 3 WEEKS
     Route: 042
     Dates: start: 20230921
  3. TAXOL [Suspect]
     Active Substance: PACLITAXEL
     Indication: Non-small cell lung cancer
     Dosage: 402 MG, EVERY 3 WEEKS
     Route: 042
     Dates: start: 20230831
  4. TAXOL [Suspect]
     Active Substance: PACLITAXEL
     Dosage: 240 MG, EVERY 3 WEEKS
     Route: 042
     Dates: start: 20230921

REACTIONS (6)
  - Circulatory collapse [Unknown]
  - Infusion related reaction [Unknown]
  - Dyspnoea [Unknown]
  - Unresponsive to stimuli [Unknown]
  - Neuropathy peripheral [Unknown]
  - Gait disturbance [Unknown]

NARRATIVE: CASE EVENT DATE: 20230921
